FAERS Safety Report 19907988 (Version 1)
Quarter: 2021Q3

REPORT INFORMATION
  Report Type: Spontaneous
  Country: CN (occurrence: CN)
  Receive Date: 20210930
  Receipt Date: 20210930
  Transmission Date: 20211014
  Serious: Yes (Disabling)
  Sender: FDA-Public Use
  Company Number: CN-BAXTER-2021BAX024559

PATIENT
  Age: 68 Year
  Sex: Male
  Weight: 60 kg

DRUGS (25)
  1. 0.9% SODIUM CHLORIDE INJECTION [Suspect]
     Active Substance: SODIUM CHLORIDE
     Dosage: 3RD CYCLE; NORMAL SALINE 500ML + CYCLOPHOSPHAMIDE FOR INJECTION 1G ON D1
     Route: 041
     Dates: start: 20200706, end: 20200706
  2. VINORELBINE TARTRATE. [Suspect]
     Active Substance: VINORELBINE TARTRATE
     Indication: NON-HODGKIN^S LYMPHOMA
     Dosage: 1ST AND 2ND CYCLE; NORMAL SALINE + VINORELBINE
     Route: 041
  3. VINORELBINE TARTRATE. [Suspect]
     Active Substance: VINORELBINE TARTRATE
     Dosage: DOSE REINTRODUCED; NORMAL SALINE + VINORELBINE
     Route: 041
  4. ETOPOSIDE. [Suspect]
     Active Substance: ETOPOSIDE
     Indication: NON-HODGKIN^S LYMPHOMA
     Dosage: 1ST AND 2ND CYCLE; NORMAL SALINE + ETOPOSIDE
     Route: 041
  5. ENDOXAN [Suspect]
     Active Substance: CYCLOPHOSPHAMIDE
     Dosage: 3RD CYCLE; NORMAL SALINE 500ML + CYCLOPHOSPHAMIDE FOR INJECTION 1G ON D1
     Route: 041
     Dates: start: 20200706, end: 20200706
  6. 0.9% SODIUM CHLORIDE INJECTION [Suspect]
     Active Substance: SODIUM CHLORIDE
     Dosage: DOSE REINTRODUCED; NORMAL SALINE + VINORELBINE
     Route: 041
  7. RITUXIMAB. [Suspect]
     Active Substance: RITUXIMAB
     Dosage: 3RD CYCLE; 5% GLUCOSE 750ML + RITUXIMAB INJECTION 600 MG; DAY 1
     Route: 041
     Dates: start: 20200706, end: 20200706
  8. ENDOXAN [Suspect]
     Active Substance: CYCLOPHOSPHAMIDE
     Indication: NON-HODGKIN^S LYMPHOMA
     Dosage: 1ST AND 2ND CYCLE; NORMAL SALINE + CYCLOPHOSPHAMIDE
     Route: 041
  9. 0.9% SODIUM CHLORIDE INJECTION [Suspect]
     Active Substance: SODIUM CHLORIDE
     Indication: MEDICATION DILUTION
     Dosage: 1ST AND 2ND CYCLE; NORMAL SALINE + CYCLOPHOSPHAMIDE
     Route: 041
  10. 5% GLUCOSE  INJECTION [Suspect]
     Active Substance: DEXTROSE
     Dosage: 3RD CYCLE; 5% GLUCOSE 750ML + RITUXIMAB INJECTION 600 MG; DAY 1
     Route: 041
     Dates: start: 20200706, end: 20200706
  11. 0.9% SODIUM CHLORIDE INJECTION [Suspect]
     Active Substance: SODIUM CHLORIDE
     Dosage: DOSE REINTRODUCED; NORMAL SALINE + ETOPOSIDE
     Route: 041
  12. 0.9% SODIUM CHLORIDE INJECTION [Suspect]
     Active Substance: SODIUM CHLORIDE
     Dosage: DOSE REINTRODUCED; NORMAL SALINE + CYCLOPHOSPHAMIDE
     Route: 041
  13. 0.9% SODIUM CHLORIDE INJECTION [Suspect]
     Active Substance: SODIUM CHLORIDE
     Dosage: 3RD CYCLE; NORMAL SALINE 250ML + VINORELBINE INJECTION 40 MG; DAY 1
     Route: 041
     Dates: start: 20200706, end: 20200706
  14. 0.9% SODIUM CHLORIDE INJECTION [Suspect]
     Active Substance: SODIUM CHLORIDE
     Dosage: 1ST AND 2ND CYCLE; NORMAL SALINE + ETOPOSIDE
     Route: 041
  15. 5% GLUCOSE  INJECTION [Suspect]
     Active Substance: DEXTROSE
     Indication: MEDICATION DILUTION
     Dosage: 1ST AND 2ND CYCLE; 1ST AND 2ND CYCLE; 5% GLUCOSE + RITUXIMAB
     Route: 041
  16. RITUXIMAB. [Suspect]
     Active Substance: RITUXIMAB
     Indication: NON-HODGKIN^S LYMPHOMA
     Dosage: 1ST AND 2ND CYCLE; 5% GLUCOSE + RITUXIMAB
     Route: 041
  17. 0.9% SODIUM CHLORIDE INJECTION [Suspect]
     Active Substance: SODIUM CHLORIDE
     Dosage: 1ST AND 2ND CYCLE; NORMAL SALINE + VINORELBINE
     Route: 041
  18. 0.9% SODIUM CHLORIDE INJECTION [Suspect]
     Active Substance: SODIUM CHLORIDE
     Dosage: DAY 1, DAY 3, DAY 5; NORMAL SALINE 500ML + ETOPOSIDE INJECTION 0.1G
     Route: 041
     Dates: start: 20200706, end: 20200710
  19. 5% GLUCOSE  INJECTION [Suspect]
     Active Substance: DEXTROSE
     Dosage: DOSE REINTRODUCED; 5% GLUCOSE + RITUXIMAB
     Route: 041
  20. ETOPOSIDE. [Suspect]
     Active Substance: ETOPOSIDE
     Dosage: DAY 1, DAY 3, DAY 5; NORMAL SALINE 500ML + ETOPOSIDE INJECTION 0.1G
     Route: 041
     Dates: start: 20200706, end: 20200710
  21. ETOPOSIDE. [Suspect]
     Active Substance: ETOPOSIDE
     Dosage: DOSE REINTRODUCED; NORMAL SALINE + ETOPOSIDE
     Route: 041
  22. ENDOXAN [Suspect]
     Active Substance: CYCLOPHOSPHAMIDE
     Dosage: DOSE REINTRODUCED; NORMAL SALINE + CYCLOPHOSPHAMIDE
     Route: 041
  23. VINORELBINE TARTRATE. [Suspect]
     Active Substance: VINORELBINE TARTRATE
     Dosage: 3RD CYCLE; NORMAL SALINE 250ML + VINORELBINE INJECTION 40 MG; DAY 1
     Route: 041
     Dates: start: 20200706, end: 20200706
  24. RITUXIMAB. [Suspect]
     Active Substance: RITUXIMAB
     Dosage: DOSE REINTRODUCED; 5% GLUCOSE + RITUXIMAB
     Route: 041
  25. LEUCOGEN [Concomitant]
     Active Substance: LEUCOGEN
     Indication: PROPHYLAXIS
     Route: 065
     Dates: start: 20200705

REACTIONS (4)
  - White blood cell count decreased [Recovered/Resolved]
  - Anaemia [Recovered/Resolved]
  - Agranulocytosis [Recovered/Resolved]
  - Platelet disorder [Recovered/Resolved]

NARRATIVE: CASE EVENT DATE: 20200717
